FAERS Safety Report 4276615-0 (Version None)
Quarter: 2004Q1

REPORT INFORMATION
  Report Type: 
  Country: None (occurrence: None)
  Receive Date: 20040120
  Receipt Date: 20040114
  Transmission Date: 20041129
  Serious: Yes (Other)
  Sender: FDA-Public Use
  Company Number: US-JNJFOC-20040102650

PATIENT
  Age: 57 Year
  Sex: Female

DRUGS (1)
  1. SPORANOX [Suspect]
     Indication: ASPERGILLOSIS
     Dosage: 200 MG, 2 IN 1 DAY, INTRAVENOUS
     Route: 042
     Dates: start: 20040111, end: 20040113

REACTIONS (2)
  - BLOOD CREATININE INCREASED [None]
  - MENTAL STATUS CHANGES [None]
